FAERS Safety Report 14218209 (Version 3)
Quarter: 2018Q1

REPORT INFORMATION
  Report Type: Spontaneous
  Country: US (occurrence: US)
  Receive Date: 20171123
  Receipt Date: 20180313
  Transmission Date: 20180508
  Serious: Yes (Life-Threatening, Hospitalization, Other)
  Sender: FDA-Public Use
  Company Number: US-ELI_LILLY_AND_COMPANY-US201711006827

PATIENT
  Sex: Female

DRUGS (6)
  1. TOUJEO [Concomitant]
     Active Substance: INSULIN GLARGINE
     Indication: DIABETES MELLITUS
     Dosage: 100 MG, BID
  2. HUMALOG [Suspect]
     Active Substance: INSULIN LISPRO
     Dosage: UNK UNK, PRN
     Route: 058
  3. PREDNISONE. [Suspect]
     Active Substance: PREDNISONE
     Indication: GRANULOMATOSIS WITH POLYANGIITIS
     Dosage: UNK UNK, UNKNOWN
     Route: 065
  4. GLIMEPIRIDE. [Concomitant]
     Active Substance: GLIMEPIRIDE
     Indication: DIABETES MELLITUS
     Dosage: 4 MG, DAILY
  5. HUMALOG [Suspect]
     Active Substance: INSULIN LISPRO
     Indication: TYPE 2 DIABETES MELLITUS
     Dosage: UNK UNK, PRN
     Route: 058
     Dates: start: 2014
  6. HUMALOG [Suspect]
     Active Substance: INSULIN LISPRO
     Dosage: UNK UNK, PRN
     Route: 058

REACTIONS (21)
  - Diabetic neuropathy [Unknown]
  - Insomnia [Recovering/Resolving]
  - Drug dose omission [Unknown]
  - Arthropathy [Recovering/Resolving]
  - Blood glucose increased [Unknown]
  - Wagner^s disease [Unknown]
  - Poor quality sleep [Unknown]
  - Spinal column stenosis [Unknown]
  - Fall [Recovering/Resolving]
  - Poor peripheral circulation [Unknown]
  - Neuropathy peripheral [Unknown]
  - Loss of consciousness [Unknown]
  - Weight decreased [Recovering/Resolving]
  - Gait disturbance [Recovering/Resolving]
  - Haemoptysis [Unknown]
  - Hypoacusis [Unknown]
  - Granulomatosis with polyangiitis [Unknown]
  - Night sweats [Recovering/Resolving]
  - Musculoskeletal pain [Recovering/Resolving]
  - Memory impairment [Recovering/Resolving]
  - Mobility decreased [Unknown]

NARRATIVE: CASE EVENT DATE: 2014
